FAERS Safety Report 16268689 (Version 1)
Quarter: 2019Q2

REPORT INFORMATION
  Report Type: Spontaneous
  Country: US (occurrence: US)
  Receive Date: 20190503
  Receipt Date: 20190503
  Transmission Date: 20190711
  Serious: No
  Sender: FDA-Public Use
  Company Number: US-009507513-1905USA000979

PATIENT

DRUGS (3)
  1. BRIDION [Suspect]
     Active Substance: SUGAMMADEX
     Dosage: 16 MILLIGRAM/KILOGRAM
  2. BRIDION [Suspect]
     Active Substance: SUGAMMADEX
     Dosage: 4 MILLIGRAM/KILOGRAM
  3. BRIDION [Suspect]
     Active Substance: SUGAMMADEX
     Indication: NEUROMUSCULAR BLOCKADE REVERSAL
     Dosage: 2 MILLIGRAM/KILOGRAM

REACTIONS (2)
  - No adverse event [Unknown]
  - Product use issue [Unknown]
